FAERS Safety Report 10943385 (Version 5)
Quarter: 2015Q3

REPORT INFORMATION
  Report Type: Spontaneous
  Country: US (occurrence: US)
  Receive Date: 20150322
  Receipt Date: 20150807
  Transmission Date: 20151125
  Serious: No
  Sender: FDA-Public Use
  Company Number: US-JNJFOC-20150204664

PATIENT
  Sex: Male

DRUGS (2)
  1. RISPERIDONE. [Suspect]
     Active Substance: RISPERIDONE
     Indication: AUTISM
     Route: 048
     Dates: start: 2008, end: 2013
  2. RISPERDAL [Suspect]
     Active Substance: RISPERIDONE
     Indication: AUTISM
     Route: 048
     Dates: start: 2006, end: 2008

REACTIONS (8)
  - Emotional distress [Unknown]
  - Drug tolerance [Unknown]
  - Obesity [Unknown]
  - Gynaecomastia [Unknown]
  - Lethargy [Unknown]
  - Hypersomnia [Unknown]
  - Increased appetite [Unknown]
  - Drooling [Unknown]
